FAERS Safety Report 24744951 (Version 1)
Quarter: 2024Q4

REPORT INFORMATION
  Report Type: Report from Study
  Country: US (occurrence: US)
  Receive Date: 20241217
  Receipt Date: 20241217
  Transmission Date: 20250114
  Serious: Yes (Other)
  Sender: ABBVIE
  Company Number: US-ABBVIE-6001018

PATIENT
  Age: 58 Year
  Sex: Female
  Weight: 54 kg

DRUGS (11)
  1. HUMIRA [Suspect]
     Active Substance: ADALIMUMAB
     Indication: Colitis ulcerative
     Route: 058
     Dates: start: 20220119, end: 202409
  2. HUMIRA [Suspect]
     Active Substance: ADALIMUMAB
     Indication: Ankylosing spondylitis
     Route: 058
     Dates: start: 202410
  3. LEXAPRO [Concomitant]
     Active Substance: ESCITALOPRAM OXALATE
     Indication: Depression
  4. SYNTHROID [Concomitant]
     Active Substance: LEVOTHYROXINE SODIUM
     Indication: Thyroid disorder
  5. VITAMIN D [Concomitant]
     Active Substance: VITAMIN D NOS
     Indication: Vitamin supplementation
  6. DULOXETINE [Concomitant]
     Active Substance: DULOXETINE
     Indication: Neuralgia
  7. MELOXICAM [Concomitant]
     Active Substance: MELOXICAM
     Indication: Pain
  8. AMLODIPINE [Concomitant]
     Active Substance: AMLODIPINE BESYLATE
     Indication: Hypertension
  9. CEVIMELINE [Concomitant]
     Active Substance: CEVIMELINE
     Indication: Scleroderma
  10. IRON [Concomitant]
     Active Substance: IRON
     Indication: Mineral supplementation
  11. PANTOPRAZOLE [Concomitant]
     Active Substance: PANTOPRAZOLE
     Indication: Dyspepsia

REACTIONS (3)
  - Vision blurred [Recovering/Resolving]
  - Device dislocation [Recovering/Resolving]
  - Eye operation [Recovering/Resolving]

NARRATIVE: CASE EVENT DATE: 20240101
